FAERS Safety Report 6140644-2 (Version None)
Quarter: 2009Q2

REPORT INFORMATION
  Report Type: 
  Country: None (occurrence: None)
  Receive Date: 20090401
  Receipt Date: 20090401
  Transmission Date: 20091009
  Serious: No
  Sender: FDA-Public Use
  Company Number: None

PATIENT
  Sex: Male

DRUGS (1)
  1. TIMOLOL 0.5% [Suspect]
     Indication: GLAUCOMA
     Dosage: 5 ML ONCE DAILY EYE DROPS
     Dates: start: 20090101, end: 20090301

REACTIONS (2)
  - EYE PRURITUS [None]
  - OCULAR HYPERAEMIA [None]
